FAERS Safety Report 17661878 (Version 1)
Quarter: 2020Q2

REPORT INFORMATION
  Report Type: Spontaneous
  Country: US (occurrence: US)
  Receive Date: 20200413
  Receipt Date: 20200413
  Transmission Date: 20200713
  Serious: No
  Sender: FDA-Public Use
  Company Number: None

PATIENT
  Age: 6 Year
  Sex: Female
  Weight: 22.95 kg

DRUGS (1)
  1. COPPERTONE SPORT SPF 30 NOS [Suspect]
     Active Substance: AVOBENZONE\HOMOSALATE\OCTISALATE\OCTOCRYLENE OR AVOBENZONE\OCTISALATE\OCTOCRYLENE\OXYBENZONE
     Indication: SUNBURN
     Dates: start: 20200407, end: 20200407

REACTIONS (2)
  - Adverse reaction [None]
  - Rash pruritic [None]

NARRATIVE: CASE EVENT DATE: 20200409
